FAERS Safety Report 5424352-9 (Version None)
Quarter: 2007Q3

REPORT INFORMATION
  Report Type: 
  Country: None (occurrence: None)
  Receive Date: 20070731
  Receipt Date: 20070601
  Transmission Date: 20080115
  Serious: No
  Sender: FDA-Public Use
  Company Number: US200706000291

PATIENT
  Age: 37 Year
  Sex: Female

DRUGS (11)
  1. BYETTA [Suspect]
     Indication: DIABETES MELLITUS
     Dosage: 5 UG, 2/D, SUBCUTANEOUS; 10 UG, 2/D, SUBCUTANEOUS; 5 UG, DAILY(1/D), SUBCUTANEOUS
     Route: 058
     Dates: start: 20060101, end: 20070401
  2. BYETTA [Suspect]
     Indication: DIABETES MELLITUS
     Dosage: 5 UG, 2/D, SUBCUTANEOUS; 10 UG, 2/D, SUBCUTANEOUS; 5 UG, DAILY(1/D), SUBCUTANEOUS
     Route: 058
     Dates: start: 20050101
  3. BYETTA [Suspect]
     Indication: DIABETES MELLITUS
     Dosage: 5 UG, 2/D, SUBCUTANEOUS; 10 UG, 2/D, SUBCUTANEOUS; 5 UG, DAILY(1/D), SUBCUTANEOUS
     Route: 058
  4. PREDNISONE [Concomitant]
  5. LIPITOR [Concomitant]
  6. LITHIUM CARBONATE [Concomitant]
  7. TAGAMET [Concomitant]
  8. NEXIUM [Concomitant]
  9. HUMIBID (GUAIGENESIN) [Concomitant]
  10. CELEBREX [Concomitant]
  11. LYRICA [Concomitant]

REACTIONS (7)
  - BLOOD CALCIUM INCREASED [None]
  - BLOOD GLUCOSE DECREASED [None]
  - BLOOD GLUCOSE INCREASED [None]
  - CARPAL TUNNEL SYNDROME [None]
  - DECREASED APPETITE [None]
  - HEPATIC ENZYME INCREASED [None]
  - TARSAL TUNNEL SYNDROME [None]
